FAERS Safety Report 5595269-4 (Version None)
Quarter: 2008Q1

REPORT INFORMATION
  Report Type: 
  Country: None (occurrence: None)
  Receive Date: 20080117
  Receipt Date: 20080109
  Transmission Date: 20080703
  Serious: Yes (Death)
  Sender: FDA-Public Use
  Company Number: US-PFIZER INC-2008003237

PATIENT
  Age: 43 Year
  Sex: Female

DRUGS (5)
  1. GEMFIBROZIL [Suspect]
  2. CYCLOBENZAPRINE HCL [Suspect]
  3. OLANZAPINE [Suspect]
  4. OPIOIDS [Suspect]
  5. ACETAMINOPHEN [Suspect]

REACTIONS (1)
  - DEATH [None]
